FAERS Safety Report 15357804 (Version 1)
Quarter: 2018Q3

REPORT INFORMATION
  Report Type: Report from Study
  Country: IT (occurrence: IT)
  Receive Date: 20180906
  Receipt Date: 20180906
  Transmission Date: 20181010
  Serious: Yes (Life-Threatening)
  Sender: FDA-Public Use
  Company Number: IT-BAYER-2018-162054

PATIENT
  Age: 82 Year
  Sex: Male

DRUGS (5)
  1. APIXABAN [Suspect]
     Active Substance: APIXABAN
     Indication: ATRIAL FIBRILLATION
     Dosage: 2 DF, UNK
     Route: 048
  2. ZYLORIC [Concomitant]
     Active Substance: ALLOPURINOL
     Dosage: 1 DF, UNK
     Route: 048
  3. BISOPROLOL HEMIFUMARATE [Concomitant]
     Active Substance: BISOPROLOL FUMARATE
     Dosage: 5 MG, UNK
     Route: 048
  4. CARDIOASPIRIN 100 MG GASTRO?RESISTANT TABLETS [Suspect]
     Active Substance: ASPIRIN
     Indication: ATRIAL FIBRILLATION
     Dosage: 1 DF, UNK
     Route: 048
  5. SIVASTIN [Concomitant]
     Active Substance: SIMVASTATIN
     Dosage: 1 DF, UNK
     Route: 048

REACTIONS (3)
  - Tooth socket haemorrhage [Recovering/Resolving]
  - Dyspnoea [Recovering/Resolving]
  - Alveolar osteitis [Recovering/Resolving]

NARRATIVE: CASE EVENT DATE: 20180701
